FAERS Safety Report 4474261-7 (Version None)
Quarter: 2004Q4

REPORT INFORMATION
  Report Type: 
  Country: None (occurrence: None)
  Receive Date: 20041008
  Receipt Date: 20041004
  Transmission Date: 20050328
  Serious: Yes (Life-Threatening)
  Sender: FDA-Public Use
  Company Number: 200311264BVD

PATIENT
  Age: 73 Year
  Sex: Male
  Weight: 88 kg

DRUGS (9)
  1. AVALOX (MOXIFLOCACIN HYDROCHLORIDE) [Suspect]
     Indication: PERITONITIS
     Dosage: 400 MG, TOTAL DAILY, INTRAVENOUS
     Route: 042
     Dates: start: 20031101
  2. ATRACURIUM [Suspect]
     Dates: start: 20031101
  3. TRAPANAL [Concomitant]
  4. PANCURONIUM [Concomitant]
  5. SUCCINYLCHOLIN [Concomitant]
  6. ULTIVA [Concomitant]
  7. FENTANYL [Concomitant]
  8. PROPOFOL [Concomitant]
  9. AKRINOR [Concomitant]

REACTIONS (3)
  - DRUG HYPERSENSITIVITY [None]
  - PROCEDURAL COMPLICATION [None]
  - RESPIRATORY DISORDER [None]
